FAERS Safety Report 8615842-6 (Version None)
Quarter: 2012Q3

REPORT INFORMATION
  Report Type: 
  Country: None (occurrence: None)
  Receive Date: 20120823
  Receipt Date: 20120815
  Transmission Date: 20120928
  Serious: Yes (Other)
  Sender: FDA-Public Use
  Company Number: CA-ROCHE-1025145

PATIENT
  Sex: Female

DRUGS (3)
  1. XOLAIR [Suspect]
     Indication: ASTHMA
     Route: 058
     Dates: start: 20100816
  2. XOLAIR [Suspect]
     Route: 058
     Dates: start: 20111026
  3. FLUTICASONE PROPIONATE [Suspect]
     Indication: PRODUCT USED FOR UNKNOWN INDICATION

REACTIONS (19)
  - ARTHRALGIA [None]
  - EAR PAIN [None]
  - NASOPHARYNGITIS [None]
  - DYSPNOEA [None]
  - INFLUENZA LIKE ILLNESS [None]
  - SNEEZING [None]
  - SINUS HEADACHE [None]
  - FATIGUE [None]
  - RESPIRATORY TRACT CONGESTION [None]
  - HYPERSENSITIVITY [None]
  - WHEEZING [None]
  - RHINORRHOEA [None]
  - BODY TEMPERATURE DECREASED [None]
  - INFLUENZA [None]
  - PRODUCTIVE COUGH [None]
  - COUGH [None]
  - TOOTHACHE [None]
  - RESPIRATION ABNORMAL [None]
  - OROPHARYNGEAL PAIN [None]
